FAERS Safety Report 17943307 (Version 1)
Quarter: 2020Q2

REPORT INFORMATION
  Report Type: Spontaneous
  Country: US (occurrence: US)
  Receive Date: 20200625
  Receipt Date: 20200625
  Transmission Date: 20200714
  Serious: No
  Sender: FDA-Public Use
  Company Number: US-PFIZER INC-2020244270

PATIENT
  Age: 49 Year
  Sex: Male
  Weight: 107.95 kg

DRUGS (2)
  1. NARDIL [Suspect]
     Active Substance: PHENELZINE SULFATE
     Dosage: UNK
  2. LAMICTAL [Concomitant]
     Active Substance: LAMOTRIGINE
     Indication: DEPRESSION
     Dosage: 200 MG, DAILY
     Dates: start: 2004

REACTIONS (1)
  - Therapeutic product effect incomplete [Unknown]
